FAERS Safety Report 14840691 (Version 7)
Quarter: 2019Q2

REPORT INFORMATION
  Report Type: Report from Study
  Country: DE (occurrence: DE)
  Receive Date: 20180503
  Receipt Date: 20190424
  Transmission Date: 20190711
  Serious: No
  Sender: FDA-Public Use
  Company Number: DE-BRISTOL-MYERS SQUIBB COMPANY-BMS-2018-039045

PATIENT
  Age: 72 Year
  Sex: Male
  Weight: 81 kg

DRUGS (4)
  1. IPILIMUMAB [Suspect]
     Active Substance: IPILIMUMAB
     Indication: MALIGNANT MELANOMA
     Dosage: 1 DF = 250 (UNITS UNSPECIFIED), Q3WK
     Route: 065
     Dates: start: 20180309, end: 20180420
  2. NIVOLUMAB [Suspect]
     Active Substance: NIVOLUMAB
     Indication: MALIGNANT MELANOMA
     Dosage: 1 DF = 240 (UNTS UNSPECIFIED), Q2WK
     Route: 065
     Dates: start: 20180109, end: 20180223
  3. NIVOLUMAB [Suspect]
     Active Substance: NIVOLUMAB
     Indication: LUNG NEOPLASM MALIGNANT
     Dosage: 1 DF =  84 UNIT NOS, Q3WK
     Route: 065
     Dates: start: 20180309, end: 20180420
  4. IPILIMUMAB [Suspect]
     Active Substance: IPILIMUMAB
     Indication: LUNG NEOPLASM MALIGNANT
     Route: 065

REACTIONS (1)
  - Periodontitis [Unknown]

NARRATIVE: CASE EVENT DATE: 20180206
